FAERS Safety Report 8019266-4 (Version None)
Quarter: 2012Q1

REPORT INFORMATION
  Report Type: 
  Country: None (occurrence: None)
  Receive Date: 20120103
  Receipt Date: 20111222
  Transmission Date: 20120608
  Serious: Yes (Other)
  Sender: FDA-Public Use
  Company Number: US-CELGENEUS-163-21880-11022805

PATIENT
  Sex: Female
  Weight: 60.3 kg

DRUGS (1)
  1. REVLIMID [Suspect]
     Dosage: 25 MILLIGRAM
     Route: 048
     Dates: start: 20090911

REACTIONS (3)
  - HAEMORRHAGE [None]
  - DIARRHOEA [None]
  - ECCHYMOSIS [None]
